FAERS Safety Report 11883283 (Version 1)
Quarter: 2015Q4

REPORT INFORMATION
  Report Type: Spontaneous
  Country: US (occurrence: US)
  Receive Date: 20151231
  Receipt Date: 20151231
  Transmission Date: 20160305
  Serious: Yes (Other)
  Sender: FDA-Public Use
  Company Number: US-PFIZER INC-2015474106

PATIENT
  Age: 64 Year
  Sex: Female

DRUGS (2)
  1. CHANTIX [Suspect]
     Active Substance: VARENICLINE TARTRATE
     Indication: SMOKING CESSATION THERAPY
     Dosage: 1 MG IN THE MORNING AND IN THE EVENING
  2. AMBIEN [Suspect]
     Active Substance: ZOLPIDEM TARTRATE
     Indication: INSOMNIA
     Dosage: 10MG, ONCE A DAY AT NIGHT (AT BEDTIME)

REACTIONS (4)
  - Sleep-related eating disorder [Unknown]
  - Somnambulism [Unknown]
  - Somnolence [Unknown]
  - Abnormal dreams [Unknown]
